FAERS Safety Report 8182196-1 (Version None)
Quarter: 2012Q1

REPORT INFORMATION
  Report Type: 
  Country: None (occurrence: None)
  Receive Date: 20120302
  Receipt Date: 20120217
  Transmission Date: 20120608
  Serious: Yes (Other)
  Sender: FDA-Public Use
  Company Number: FI-AMGEN-FINSP2012005966

PATIENT
  Age: 7 Year
  Sex: Male

DRUGS (5)
  1. NALTREXONE HYDROCHLORIDE [Concomitant]
     Dosage: 20 MG, WEEKLY, ON FRIDAYS
  2. OXIKLORIN [Concomitant]
     Dosage: 100 MG, 1X/DAY
  3. FOLVITE [Concomitant]
     Dosage: 1 MG, 5 TIMES A WEEK
  4. PREDNISOLONE [Suspect]
     Dosage: 7,5 MG AND 10 MG ON ALTERNATE DAYS
  5. ENBREL [Suspect]
     Indication: PRODUCT USED FOR UNKNOWN INDICATION
     Dosage: 15 MG, 2X/WEEK
     Route: 058
     Dates: start: 20000627, end: 20040603

REACTIONS (3)
  - ARTHROPATHY [None]
  - CONDITION AGGRAVATED [None]
  - GROWTH RETARDATION [None]
